FAERS Safety Report 8816164 (Version 1)
Quarter: 2012Q4

REPORT INFORMATION
  Report Type: 
  Country: US (occurrence: US)
  Receive Date: 20120929
  Receipt Date: 20120929
  Transmission Date: 20130627
  Serious: No
  Sender: FDA-Public Use
  Company Number: US-009507513-1209USA010495

PATIENT
  Sex: Female

DRUGS (3)
  1. INTRONA [Suspect]
     Indication: HEPATITIS C
     Dosage: UNK
     Dates: start: 19990101, end: 19990601
  2. INTRONA [Suspect]
     Dosage: UNK
     Dates: start: 20120907
  3. REBETOL [Suspect]
     Indication: HEPATITIS C
     Dosage: UNK
     Dates: start: 19990101, end: 19990601

REACTIONS (3)
  - Hepatitis C [Unknown]
  - Fatigue [Unknown]
  - Platelet count decreased [Unknown]
